FAERS Safety Report 4705311-8 (Version None)
Quarter: 2005Q2

REPORT INFORMATION
  Report Type: 
  Country: None (occurrence: None)
  Receive Date: 20050628
  Receipt Date: 20050614
  Transmission Date: 20051028
  Serious: Yes (Other)
  Sender: FDA-Public Use
  Company Number: JP_050606822

PATIENT
  Sex: Male

DRUGS (1)
  1. GEMZAR [Suspect]

REACTIONS (1)
  - DYSGEUSIA [None]
